FAERS Safety Report 8623074-0 (Version None)
Quarter: 2012Q3

REPORT INFORMATION
  Report Type: 
  Country: None (occurrence: None)
  Receive Date: 20120827
  Receipt Date: 20120817
  Transmission Date: 20120928
  Serious: Yes (Other)
  Sender: FDA-Public Use
  Company Number: CA-JNJFOC-20120809277

PATIENT
  Sex: Female
  Weight: 99.79 kg

DRUGS (1)
  1. REMICADE [Suspect]
     Indication: CROHN'S DISEASE
     Route: 042
     Dates: end: 20120401

REACTIONS (3)
  - WEIGHT DECREASED [None]
  - BODY TEMPERATURE DECREASED [None]
  - MALAISE [None]
